FAERS Safety Report 24173714 (Version 2)
Quarter: 2024Q3

REPORT INFORMATION
  Report Type: Spontaneous
  Country: CN (occurrence: CN)
  Receive Date: 20240805
  Receipt Date: 20240903
  Transmission Date: 20241016
  Serious: Yes (Hospitalization, Other)
  Sender: SANOFI AVENTIS
  Company Number: CN-SANOFI-02094848

PATIENT
  Age: 41 Year
  Sex: Male

DRUGS (2)
  1. LANTUS [Suspect]
     Active Substance: INSULIN GLARGINE
     Indication: Diabetes mellitus
     Dosage: 15 IU, QD
  2. HUMALOG [Concomitant]
     Active Substance: INSULIN LISPRO
     Dosage: UNK

REACTIONS (7)
  - Retinal haemorrhage [Recovering/Resolving]
  - Diabetes mellitus inadequate control [Recovered/Resolved]
  - Blood glucose fluctuation [Recovered/Resolved]
  - Device delivery system issue [Unknown]
  - Blood glucose increased [Unknown]
  - Product quality issue [Unknown]
  - Product storage error [Unknown]

NARRATIVE: CASE EVENT DATE: 20240601
